FAERS Safety Report 4643076-9 (Version None)
Quarter: 2005Q2

REPORT INFORMATION
  Report Type: 
  Country: None (occurrence: None)
  Receive Date: 20050422
  Receipt Date: 20050412
  Transmission Date: 20051028
  Serious: Yes (Death, Other)
  Sender: FDA-Public Use
  Company Number: 2004112716

PATIENT
  Age: 82 Year
  Sex: Female

DRUGS (10)
  1. BEXTRA [Suspect]
     Indication: ILL-DEFINED DISORDER
  2. DILTIAZEM HYDROCHLORIDE [Concomitant]
  3. VALSARTAN [Concomitant]
  4. FENOFIBRATE [Concomitant]
  5. DIGOXIN [Concomitant]
  6. ALENDRONATE SODIUM [Concomitant]
  7. ALL OTHER THERAPEUTIC PRODUCTS [Concomitant]
  8. METFORMIN HCL [Concomitant]
  9. ACETYL SALICYLIC ACID USP BAT [Concomitant]
  10. METHYLPREDNISOLONE SODIUM SUCCINATE [Concomitant]

REACTIONS (4)
  - LEUKOCYTOCLASTIC VASCULITIS [None]
  - PNEUMONIA [None]
  - SEPSIS [None]
  - STEVENS-JOHNSON SYNDROME [None]
